FAERS Safety Report 14834620 (Version 4)
Quarter: 2022Q1

REPORT INFORMATION
  Report Type: Spontaneous
  Country: JP (occurrence: JP)
  Receive Date: 20180501
  Receipt Date: 20220202
  Transmission Date: 20220423
  Serious: Yes (Hospitalization, Other)
  Sender: FDA-Public Use
  Company Number: JP-SANOFI-2018SA093948

PATIENT
  Age: 4 Year
  Sex: Female

DRUGS (16)
  1. SABRIL [Suspect]
     Active Substance: VIGABATRIN
     Indication: Infantile spasms
     Dosage: 750 MG/DAY (BID)
     Route: 048
     Dates: start: 20170303, end: 20170410
  2. SABRIL [Suspect]
     Active Substance: VIGABATRIN
     Dosage: UNK, BID
     Route: 048
     Dates: start: 20170217, end: 20170222
  3. SABRIL [Suspect]
     Active Substance: VIGABATRIN
     Dosage: 500MG/DAY, BID
     Route: 048
     Dates: start: 20170223, end: 20170302
  4. SABRIL [Suspect]
     Active Substance: VIGABATRIN
     Dosage: 500MG/DAY, BID
     Route: 048
     Dates: start: 20170411, end: 20170501
  5. SABRIL [Suspect]
     Active Substance: VIGABATRIN
     Dosage: 750MG/DAY, BID
     Route: 048
     Dates: start: 20170502, end: 20170512
  6. SABRIL [Suspect]
     Active Substance: VIGABATRIN
     Dosage: 562.5 MG, BID
     Route: 048
     Dates: start: 20170513, end: 20170619
  7. SABRIL [Suspect]
     Active Substance: VIGABATRIN
     Dosage: 375 MG, BID
     Route: 048
     Dates: start: 20170620, end: 20180226
  8. SABRIL [Suspect]
     Active Substance: VIGABATRIN
     Dosage: 500 MG, BID
     Route: 048
     Dates: start: 20180227, end: 20180910
  9. SABRIL [Suspect]
     Active Substance: VIGABATRIN
     Dosage: 375 MG, BID
     Route: 048
     Dates: start: 20180911, end: 20181010
  10. SABRIL [Suspect]
     Active Substance: VIGABATRIN
     Dosage: 250 MG, BID
     Route: 048
     Dates: start: 20181011, end: 20190303
  11. SABRIL [Suspect]
     Active Substance: VIGABATRIN
     Dosage: 125 MG, BID
     Route: 048
     Dates: start: 20190304, end: 20190507
  12. VALPROATE SODIUM [Concomitant]
     Active Substance: VALPROATE SODIUM
     Indication: Infantile spasms
     Dosage: 250 MG/DAY
     Route: 048
  13. LAMOTRIGINE [Concomitant]
     Active Substance: LAMOTRIGINE
     Indication: Infantile spasms
     Dosage: 40 MG/DAY
     Route: 048
  14. MAGNESIUM OXIDE [Concomitant]
     Active Substance: MAGNESIUM OXIDE
     Indication: Product used for unknown indication
     Dosage: 0.75 G/DAY
     Route: 048
  15. TAURINE [Concomitant]
     Active Substance: TAURINE
     Indication: Prophylaxis
     Dosage: 0.25 G/DAY
     Route: 048
     Dates: start: 20170221, end: 20171127
  16. TAURINE [Concomitant]
     Active Substance: TAURINE
     Indication: Investigation
     Dosage: 0.15 G/DAY
     Route: 048
     Dates: start: 20171128

REACTIONS (5)
  - Pneumonia [Recovered/Resolved]
  - Somnolence [Recovered/Resolved]
  - Iron deficiency anaemia [Recovering/Resolving]
  - Carnitine decreased [Recovering/Resolving]
  - Drug ineffective [Unknown]

NARRATIVE: CASE EVENT DATE: 20170401
